FAERS Safety Report 7580989-2 (Version None)
Quarter: 2011Q2

REPORT INFORMATION
  Report Type: 
  Country: None (occurrence: None)
  Receive Date: 20110629
  Receipt Date: 20110621
  Transmission Date: 20111010
  Serious: Yes (Other)
  Sender: FDA-Public Use
  Company Number: US-ABBOTT-11P-163-0734308-00

PATIENT
  Sex: Male
  Weight: 81.72 kg

DRUGS (10)
  1. COZAAR [Concomitant]
     Indication: HYPERTENSION
  2. CRESTOR [Concomitant]
     Indication: HYPERLIPIDAEMIA
  3. DICYCLOMINE [Concomitant]
     Indication: GASTRIC DISORDER
  4. HYDROCODONE [Concomitant]
     Indication: PAIN
  5. HUMIRA [Suspect]
     Dates: start: 20110101
  6. CYMBALTA [Concomitant]
     Indication: DEPRESSION
  7. NIASPAN [Concomitant]
     Indication: HYPERLIPIDAEMIA
  8. HUMIRA [Suspect]
     Indication: RHEUMATOID ARTHRITIS
     Dates: start: 20110101, end: 20110101
  9. COREG [Concomitant]
     Indication: HYPERTENSION
  10. MORPHINE [Concomitant]
     Indication: PAIN

REACTIONS (2)
  - PROSTATIC SPECIFIC ANTIGEN INCREASED [None]
  - PROSTATE CANCER [None]
